FAERS Safety Report 4722153-8 (Version None)
Quarter: 2005Q3

REPORT INFORMATION
  Report Type: 
  Country: None (occurrence: None)
  Receive Date: 20050722
  Receipt Date: 20040812
  Transmission Date: 20060218
  Serious: Yes (Other)
  Sender: FDA-Public Use
  Company Number: US-GLAXOSMITHKLINE-A0522061A

PATIENT
  Sex: Female

DRUGS (7)
  1. AVANDIA [Suspect]
     Dosage: 4MG PER DAY
     Route: 048
     Dates: start: 20010909, end: 20021115
  2. ATENOLOL [Concomitant]
     Route: 048
  3. ACCUPRIL [Concomitant]
     Route: 048
  4. LOMOTIL [Concomitant]
     Route: 048
  5. LEVSIN [Concomitant]
     Route: 048
  6. IMODIUM [Concomitant]
     Route: 048
  7. NORVASC [Concomitant]
     Route: 048
     Dates: start: 20021119

REACTIONS (1)
  - CARDIAC FAILURE CONGESTIVE [None]
